FAERS Safety Report 9368095 (Version 1)
Quarter: 2013Q2

REPORT INFORMATION
  Report Type: Spontaneous
  Country: US (occurrence: US)
  Receive Date: 20130625
  Receipt Date: 20130625
  Transmission Date: 20140414
  Serious: No
  Sender: FDA-Public Use
  Company Number: US-ASTELLAS-2012US012440

PATIENT
  Sex: Male
  Weight: 69 kg

DRUGS (2)
  1. VESICARE [Suspect]
     Indication: URINARY INCONTINENCE
     Dosage: 10 MG, UNKNOWN/D
     Route: 048
     Dates: start: 201202
  2. VESICARE [Suspect]
     Dosage: 10 MG, BID
     Route: 048
     Dates: end: 20121127

REACTIONS (6)
  - Inappropriate schedule of drug administration [Unknown]
  - Drug ineffective [Unknown]
  - Urinary incontinence [Unknown]
  - Dizziness [Unknown]
  - Dry mouth [Unknown]
  - Constipation [Unknown]
